FAERS Safety Report 14159990 (Version 6)
Quarter: 2018Q1

REPORT INFORMATION
  Report Type: Report from Study
  Country: US (occurrence: US)
  Receive Date: 20171103
  Receipt Date: 20180202
  Transmission Date: 20180508
  Serious: Yes (Death, Hospitalization, Other)
  Sender: FDA-Public Use
  Company Number: US-AMGEN-USASL2017142689

PATIENT
  Age: 72 Year
  Sex: Female
  Weight: 70.75 kg

DRUGS (45)
  1. NEULASTA [Concomitant]
     Active Substance: PEGFILGRASTIM
     Dosage: 6 MG, UNK
     Route: 058
     Dates: start: 20161209, end: 20161230
  2. METOPROLOL TARTRATE. [Concomitant]
     Active Substance: METOPROLOL TARTRATE
     Dosage: 1 DF, BID
     Route: 048
     Dates: start: 20170914
  3. PROCHLORPERAZINE MALEATE. [Concomitant]
     Active Substance: PROCHLORPERAZINE MALEATE
     Indication: NAUSEA
     Dosage: 1 DF, AS NECESSARY
     Route: 048
     Dates: start: 20170607
  4. PROCRIT [Suspect]
     Active Substance: ERYTHROPOIETIN
     Dosage: 40000 UNIT, QWK IF HGB {10
     Route: 058
     Dates: start: 20170706
  5. NEULASTA [Concomitant]
     Active Substance: PEGFILGRASTIM
     Dosage: UNK (X 1)
     Route: 058
     Dates: start: 20170120, end: 20170303
  6. FUROSEMIDE. [Concomitant]
     Active Substance: FUROSEMIDE
     Dosage: 1 DF, QD
     Route: 048
     Dates: start: 20161223
  7. METFORMIN [Concomitant]
     Active Substance: METFORMIN HYDROCHLORIDE
     Dosage: 1 DF, BID
     Dates: start: 20161123
  8. RITALIN [Concomitant]
     Active Substance: METHYLPHENIDATE HYDROCHLORIDE
     Dosage: 1 DF, BID
     Route: 048
     Dates: start: 20170706
  9. NEULASTA [Concomitant]
     Active Substance: PEGFILGRASTIM
     Dosage: 6 MG, Q4WK
     Route: 058
     Dates: start: 20161130, end: 20161130
  10. ZARXIO [Concomitant]
     Active Substance: FILGRASTIM-SNDZ
     Indication: PANCYTOPENIA
     Dosage: 480 MUG, AFTER CHEMO (3 DAYS)
     Route: 058
     Dates: start: 20170609, end: 20171014
  11. FLU VACCINE VII [Concomitant]
     Active Substance: INFLUENZA VIRUS VACCINE
     Dosage: UNK
     Dates: start: 20170912, end: 20170928
  12. CARBOPLATIN. [Concomitant]
     Active Substance: CARBOPLATIN
     Indication: SMALL CELL LUNG CANCER EXTENSIVE STAGE
     Dosage: UNK, AUC, 5 DAY 1
     Dates: start: 20161123, end: 20170622
  13. LIDOCAINE AND EPINEPHRINE [Concomitant]
     Active Substance: EPINEPHRINE\LIDOCAINE HYDROCHLORIDE
     Dosage: UNK, APPLY TO PORT SITE 30 MINUTES PRIOR TO CHEMOTHERAPY
     Dates: start: 20161206
  14. PEPCID [Concomitant]
     Active Substance: FAMOTIDINE
     Dosage: 1 DF, UNK, 1 HR PRIOR TO IV CONTRAST PROCEDURE
     Route: 048
     Dates: start: 20170710
  15. IMODIUM [Concomitant]
     Active Substance: LOPERAMIDE HYDROCHLORIDE
     Dosage: 2 MG, AS NECESSARY, 4 TIMES DAILY
     Route: 048
  16. ENOXAPARIN [Concomitant]
     Active Substance: ENOXAPARIN
     Dosage: 40 MG, QD
     Route: 058
  17. METOPROLOL. [Concomitant]
     Active Substance: METOPROLOL
     Dosage: 100 MG, BID
     Route: 048
  18. TOPOTECAN [Suspect]
     Active Substance: TOPOTECAN HYDROCHLORIDE
     Indication: SMALL CELL LUNG CANCER
     Dosage: 6 MG, QWK, 3 CYCLES
     Route: 065
     Dates: start: 20170606, end: 20170831
  19. PREDNISONE. [Concomitant]
     Active Substance: PREDNISONE
     Dosage: 1 DF, UNK, 12HRS, 6 HRS AND 1HR PRIOR TO IV CONTRAST PROCEDURE
     Route: 048
  20. PREDNISONE. [Concomitant]
     Active Substance: PREDNISONE
     Dosage: UNK, TAPERED DOSE
     Route: 048
  21. LASIX [Concomitant]
     Active Substance: FUROSEMIDE
     Dosage: 1 DF, QD
     Route: 048
  22. AMARYL [Concomitant]
     Active Substance: GLIMEPIRIDE
     Dosage: 2 DF, BID
     Route: 048
  23. PROCRIT [Suspect]
     Active Substance: ERYTHROPOIETIN
     Indication: ANAEMIA
     Dosage: UNK (5 CYCLES)
     Route: 058
     Dates: start: 20170207, end: 20170307
  24. OPDIVO [Suspect]
     Active Substance: NIVOLUMAB
     Indication: SMALL CELL LUNG CANCER EXTENSIVE STAGE
     Dosage: 240 MG, Q3WK, 4 CYCLES
     Route: 065
     Dates: start: 20170824, end: 20171006
  25. VP-16 [Concomitant]
     Active Substance: ETOPOSIDE
     Indication: SMALL CELL LUNG CANCER EXTENSIVE STAGE
     Dosage: 100 MG/M2, Q4WK
     Dates: start: 20161123, end: 20170622
  26. CARBOPLATIN. [Concomitant]
     Active Substance: CARBOPLATIN
     Dosage: UNK UNK, Q4WK (D 1)
     Dates: start: 20171010, end: 20171024
  27. CPT-11 [Concomitant]
     Active Substance: IRINOTECAN
     Indication: SMALL CELL LUNG CANCER EXTENSIVE STAGE
     Dosage: UNK UNK, Q4WK (D1, 8, 15)
     Dates: start: 20171010, end: 20171024
  28. GLIMEPIRIDE. [Concomitant]
     Active Substance: GLIMEPIRIDE
     Dosage: 1 DF, BID
     Route: 048
     Dates: start: 20161123
  29. METHYLPREDNISOLONE. [Concomitant]
     Active Substance: METHYLPREDNISOLONE
     Dosage: 1 DF, BID
     Route: 048
     Dates: start: 20161223
  30. ECOTRIN [Concomitant]
     Active Substance: ASPIRIN
     Dosage: 1 DF, QD
     Route: 048
  31. LIPITOR [Concomitant]
     Active Substance: ATORVASTATIN CALCIUM
     Dosage: 1 DF, UNK
     Route: 048
  32. GLUCOPHAGE [Concomitant]
     Active Substance: METFORMIN HYDROCHLORIDE
     Dosage: 1 DF, UNK
     Route: 048
  33. ROCEPHIN [Concomitant]
     Active Substance: CEFTRIAXONE SODIUM
     Dosage: 1 G, QD (Q24H AB)
     Route: 042
  34. COLLAGENASE [Concomitant]
     Active Substance: COLLAGENASE CLOSTRIDIUM HISTOLYTICUM
     Dosage: UNK UNK, QD
     Route: 061
  35. AMIODARONE [Concomitant]
     Active Substance: AMIODARONE
     Dosage: 1 DF, BID
     Route: 048
     Dates: start: 20161123
  36. BENADRYL [Concomitant]
     Active Substance: DIPHENHYDRAMINE HYDROCHLORIDE
     Dosage: 2 DF, AS NECESSARY, ONE HR PRIOR TO IV CONTRAST PROCEDURE
     Route: 048
     Dates: start: 20170710
  37. ZYLOPRIM [Concomitant]
     Active Substance: ALLOPURINOL
     Dosage: 1 DF, QD
     Route: 048
  38. INSULIN ASPART [Concomitant]
     Active Substance: INSULIN ASPART
     Dosage: UNK (0-9 UNITS, 4 X DAILY WC)
     Route: 058
  39. ASPIRIN. [Concomitant]
     Active Substance: ASPIRIN
     Dosage: 1 DF, UNK
     Route: 048
     Dates: start: 20161123
  40. ATORVASTATIN [Concomitant]
     Active Substance: ATORVASTATIN
     Dosage: 1 DF, QD
     Route: 048
     Dates: start: 20161123
  41. LEVOTHYROXINE. [Concomitant]
     Active Substance: LEVOTHYROXINE
     Dosage: 1 DF, QD
     Route: 048
     Dates: start: 20161123
  42. PACERONE [Concomitant]
     Active Substance: AMIODARONE HYDROCHLORIDE
     Dosage: 1 DF, QD
     Route: 048
  43. YERVOY [Suspect]
     Active Substance: IPILIMUMAB
     Indication: SMALL CELL LUNG CANCER EXTENSIVE STAGE
     Dosage: 70 MG, Q3WK, 4 CYCLES
     Route: 065
     Dates: start: 20170824, end: 20171006
  44. GRANISETRON HCL [Concomitant]
     Dosage: 1 DF, Q12H X 3 DAYS STARTING EVENING OF CHEMOTHERAPY
     Route: 048
     Dates: start: 20170607
  45. LOPRESSOR [Concomitant]
     Active Substance: METOPROLOL TARTRATE
     Dosage: 1 DF, BID
     Route: 048

REACTIONS (23)
  - Oedema peripheral [Unknown]
  - Fatigue [Not Recovered/Not Resolved]
  - Death [Fatal]
  - Small cell lung cancer recurrent [Unknown]
  - Hallucination [Unknown]
  - Mean cell haemoglobin concentration decreased [Unknown]
  - Colitis [Unknown]
  - Diarrhoea [Unknown]
  - Dyspnoea [Unknown]
  - Disease progression [Unknown]
  - White blood cell count increased [Unknown]
  - Monocyte percentage increased [Unknown]
  - Tremor [Unknown]
  - Localised oedema [Unknown]
  - Asthenia [Unknown]
  - Haematocrit decreased [Unknown]
  - Vomiting [Unknown]
  - Haemoglobin decreased [Recovering/Resolving]
  - Monocyte count increased [Unknown]
  - Red cell distribution width increased [Unknown]
  - Red blood cell count decreased [Unknown]
  - Unevaluable event [Unknown]
  - Pancytopenia [Unknown]

NARRATIVE: CASE EVENT DATE: 2017
